FAERS Safety Report 7937827-5 (Version None)
Quarter: 2011Q4

REPORT INFORMATION
  Report Type: 
  Country: None (occurrence: None)
  Receive Date: 20111123
  Receipt Date: 20111115
  Transmission Date: 20120403
  Serious: Yes (Hospitalization, Disabling, Other)
  Sender: FDA-Public Use
  Company Number: US-MERCK-01032540

PATIENT
  Age: 69 Year
  Sex: Female
  Weight: 77 kg

DRUGS (7)
  1. PREDNISONE [Concomitant]
     Route: 065
  2. ALENDRONATE SODIUM [Suspect]
     Route: 048
     Dates: start: 20080609
  3. FOSAMAX [Suspect]
     Indication: OSTEOPOROSIS
     Route: 048
     Dates: start: 19960101, end: 20090101
  4. FOSAMAX [Suspect]
     Route: 048
     Dates: start: 20080717, end: 20100328
  5. FOSAMAX [Suspect]
     Indication: OSTEOPENIA
     Route: 048
     Dates: start: 19960101, end: 20090101
  6. CITRACAL + D [Concomitant]
     Route: 065
  7. CALCIUM (UNSPECIFIED) AND VITAMIN D (UNSPECIFIED) [Concomitant]
     Route: 065

REACTIONS (61)
  - TOOTH FRACTURE [None]
  - RHEUMATOID ARTHRITIS [None]
  - BUNION [None]
  - ACTIVITIES OF DAILY LIVING IMPAIRED [None]
  - BRONCHITIS [None]
  - ARTHROPATHY [None]
  - PARAESTHESIA [None]
  - HEADACHE [None]
  - TYPE 2 DIABETES MELLITUS [None]
  - BLOOD CHOLESTEROL INCREASED [None]
  - FEMUR FRACTURE [None]
  - BLOOD PRESSURE DECREASED [None]
  - PYREXIA [None]
  - SPONDYLOLISTHESIS [None]
  - HYPERCOAGULATION [None]
  - MUSCULOSKELETAL PAIN [None]
  - MITRAL VALVE DISEASE [None]
  - GASTROOESOPHAGEAL REFLUX DISEASE [None]
  - FATIGUE [None]
  - CATARACT [None]
  - CARDIAC DISORDER [None]
  - BLOOD PRESSURE SYSTOLIC INCREASED [None]
  - JOINT DISLOCATION [None]
  - FALL [None]
  - HAEMOGLOBIN DECREASED [None]
  - PULMONARY EMBOLISM [None]
  - LUMBAR SPINAL STENOSIS [None]
  - HYPOTENSION [None]
  - JOINT INJURY [None]
  - DRY SKIN [None]
  - BODY HEIGHT DECREASED [None]
  - CORONARY ARTERY DISEASE [None]
  - FEMORAL NECK FRACTURE [None]
  - HEPATIC FUNCTION ABNORMAL [None]
  - ECCHYMOSIS [None]
  - HYPERTENSION [None]
  - VASOSPASM [None]
  - PEPTIC ULCER [None]
  - FIBROMYALGIA [None]
  - GASTRIC ULCER [None]
  - FRACTURE NONUNION [None]
  - VENOUS THROMBOSIS [None]
  - INTERVERTEBRAL DISC PROTRUSION [None]
  - DIARRHOEA [None]
  - ALOPECIA [None]
  - GAIT DISTURBANCE [None]
  - ARTHRALGIA [None]
  - HEPATITIS [None]
  - CALCINOSIS [None]
  - INTERVERTEBRAL DISC DISORDER [None]
  - IMPAIRED HEALING [None]
  - HORMONE LEVEL ABNORMAL [None]
  - GRAVITATIONAL OEDEMA [None]
  - INTERVERTEBRAL DISC DEGENERATION [None]
  - COMPRESSION FRACTURE [None]
  - BACK PAIN [None]
  - CHEST PAIN [None]
  - MITRAL VALVE PROLAPSE [None]
  - ADVERSE DRUG REACTION [None]
  - VISUAL IMPAIRMENT [None]
  - HYPERSENSITIVITY [None]
